FAERS Safety Report 6739479-9 (Version None)
Quarter: 2010Q2

REPORT INFORMATION
  Report Type: 
  Country: None (occurrence: None)
  Receive Date: 20100525
  Receipt Date: 20100514
  Transmission Date: 20101027
  Serious: No
  Sender: FDA-Public Use
  Company Number: JP-JNJFOC-20100404320

PATIENT
  Age: 50 Year
  Sex: Male

DRUGS (1)
  1. DUROTEP [Suspect]
     Indication: ANALGESIC THERAPY
     Route: 062

REACTIONS (2)
  - PRURITUS [None]
  - WRONG TECHNIQUE IN DRUG USAGE PROCESS [None]
